FAERS Safety Report 6669155-2 (Version None)
Quarter: 2010Q2

REPORT INFORMATION
  Report Type: 
  Country: None (occurrence: None)
  Receive Date: 20100406
  Receipt Date: 20100325
  Transmission Date: 20101027
  Serious: Yes (Hospitalization)
  Sender: FDA-Public Use
  Company Number: JP-MERCK-1003USA04691

PATIENT
  Sex: Female

DRUGS (5)
  1. EMEND [Suspect]
     Indication: PROPHYLAXIS OF NAUSEA AND VOMITING
     Route: 048
     Dates: start: 20100301, end: 20100301
  2. KYTRIL [Concomitant]
     Route: 065
     Dates: start: 20100301, end: 20100301
  3. DECADRON PHOSPHATE [Concomitant]
     Route: 065
     Dates: start: 20100301, end: 20100301
  4. FARMORUBICIN [Concomitant]
     Route: 065
     Dates: start: 20100301, end: 20100301
  5. CYCLOPHOSPHAMIDE [Concomitant]
     Route: 065
     Dates: start: 20100301, end: 20100301

REACTIONS (6)
  - ANXIETY [None]
  - DECREASED APPETITE [None]
  - DEPRESSION [None]
  - DEPRESSIVE SYMPTOM [None]
  - DYSPNOEA [None]
  - PALPITATIONS [None]
